FAERS Safety Report 17977090 (Version 3)
Quarter: 2021Q3

REPORT INFORMATION
  Report Type: Spontaneous
  Country: JP (occurrence: JP)
  Receive Date: 20200702
  Receipt Date: 20210811
  Transmission Date: 20211014
  Serious: Yes (Other)
  Sender: FDA-Public Use
  Company Number: JP-AMGEN-JPNSP2020105245

PATIENT
  Age: 72 Year
  Sex: Male

DRUGS (1)
  1. RANMARK [Suspect]
     Active Substance: DENOSUMAB
     Indication: PRODUCT USED FOR UNKNOWN INDICATION
     Dosage: UNK
     Route: 065
     Dates: start: 201205, end: 201901

REACTIONS (3)
  - Osteonecrosis of jaw [Unknown]
  - Cellulitis [Unknown]
  - Osteomyelitis [Unknown]
